FAERS Safety Report 6093446-X (Version None)
Quarter: 2009Q1

REPORT INFORMATION
  Report Type: 
  Country: None (occurrence: None)
  Receive Date: 20090223
  Receipt Date: 20090223
  Transmission Date: 20090719
  Serious: No
  Sender: FDA-Public Use
  Company Number: None

PATIENT
  Age: 45 Year
  Sex: Male
  Weight: 86.1834 kg

DRUGS (2)
  1. SINGULAIR [Suspect]
     Indication: ASTHMA
     Dosage: 10 MG TWICE PER DAY PO
     Route: 048
     Dates: start: 20070424, end: 20070507
  2. ACCOLATE [Suspect]
     Indication: ASTHMA
     Dosage: 10 MG TWICE PER DAY PO
     Route: 048
     Dates: start: 20070521, end: 20070528

REACTIONS (2)
  - ARRHYTHMIA [None]
  - PALPITATIONS [None]
